FAERS Safety Report 13449592 (Version 1)
Quarter: 2017Q2

REPORT INFORMATION
  Report Type: Spontaneous
  Country: FR (occurrence: FR)
  Receive Date: 20170417
  Receipt Date: 20170417
  Transmission Date: 20170830
  Serious: Yes (Other)
  Sender: FDA-Public Use
  Company Number: FR-PFIZER INC-2017166142

PATIENT
  Sex: Female

DRUGS (7)
  1. URBANYL [Suspect]
     Active Substance: CLOBAZAM
     Dosage: UNK
  2. STABLON [Suspect]
     Active Substance: TIANEPTINE
     Dosage: UNK
  3. CYTOTEC [Suspect]
     Active Substance: MISOPROSTOL
     Dosage: UNK
  4. MIFEGYNE [Interacting]
     Active Substance: MIFEPRISTONE
     Dosage: UNK
  5. DEPAKINE [Suspect]
     Active Substance: VALPROATE SODIUM
     Dosage: UNK
  6. GARDENAL [Interacting]
     Active Substance: PHENOBARBITAL
     Dosage: UNK
  7. DI-HYDAN [Interacting]
     Active Substance: PHENYTOIN
     Dosage: UNK

REACTIONS (3)
  - Drug ineffective for unapproved indication [Unknown]
  - Underdose [Unknown]
  - Drug interaction [Unknown]
